FAERS Safety Report 7204297-4 (Version None)
Quarter: 2010Q4

REPORT INFORMATION
  Report Type: 
  Country: None (occurrence: None)
  Receive Date: 20101230
  Receipt Date: 20101222
  Transmission Date: 20110411
  Serious: Yes (Other)
  Sender: FDA-Public Use
  Company Number: US-JNJCH-2010029500

PATIENT
  Age: 64 Year
  Sex: Female
  Weight: 74.8 kg

DRUGS (1)
  1. EXTRA STRENGTH ROLAIDS SOFTCHEWS WILD CHERRY [Suspect]
     Indication: GASTROINTESTINAL DISORDER
     Dosage: TEXT:ONE CHEWABLE ONCE OR TWICE AS NEEDED
     Route: 048
     Dates: start: 20101001, end: 20101201

REACTIONS (3)
  - FOREIGN BODY [None]
  - PRODUCT QUALITY ISSUE [None]
  - TOOTH INJURY [None]
